FAERS Safety Report 6021597-4 (Version None)
Quarter: 2008Q4

REPORT INFORMATION
  Report Type: 
  Country: None (occurrence: None)
  Receive Date: 20081229
  Receipt Date: 20081225
  Transmission Date: 20090506
  Serious: Yes (Death)
  Sender: FDA-Public Use
  Company Number: PHHY2008JP33276

PATIENT
  Age: 70 Year
  Sex: Female

DRUGS (3)
  1. EXJADE [Suspect]
     Indication: IRON OVERLOAD
     Dosage: UNK
     Route: 048
     Dates: start: 20080808, end: 20081101
  2. EXJADE [Suspect]
     Indication: MYELODYSPLASTIC SYNDROME
  3. DESFERAL [Suspect]
     Indication: IRON OVERLOAD
     Dosage: UNK
     Dates: start: 20081101

REACTIONS (4)
  - GENERAL PHYSICAL HEALTH DETERIORATION [None]
  - HYPERTHERMIA [None]
  - PANCYTOPENIA [None]
  - RENAL FAILURE ACUTE [None]
